FAERS Safety Report 7972857-9 (Version None)
Quarter: 2011Q4

REPORT INFORMATION
  Report Type: 
  Country: None (occurrence: None)
  Receive Date: 20111213
  Receipt Date: 20111206
  Transmission Date: 20120403
  Serious: No
  Sender: FDA-Public Use
  Company Number: JP-UCBSA-047244

PATIENT
  Age: 39 Year
  Sex: Female

DRUGS (3)
  1. ANTINEOPLASTIC MEDICATION [Concomitant]
  2. PHENYTOIN SODIUM CAP [Concomitant]
  3. KEPPRA [Suspect]
     Indication: EPILEPSY
     Route: 048
     Dates: start: 20111130

REACTIONS (1)
  - PLATELET COUNT DECREASED [None]
